FAERS Safety Report 8782139 (Version 1)
Quarter: 2012Q4

REPORT INFORMATION
  Report Type: 
  Country: US (occurrence: US)
  Receive Date: 20120913
  Receipt Date: 20120913
  Transmission Date: 20130627
  Serious: No
  Sender: FDA-Public Use
  Company Number: US-VERTEX PHARMACEUTICAL INC.-2012-020029

PATIENT
  Sex: Male
  Weight: 54 kg

DRUGS (5)
  1. VX-950 [Suspect]
     Indication: HEPATITIS C
     Dosage: 750 mg, tid
     Route: 048
  2. PEGASYS [Concomitant]
     Indication: HEPATITIS C
     Dosage: 180 ?g, UNK
  3. RIBAVIRIN [Concomitant]
     Indication: HEPATITIS C
     Dosage: 200 mg, qd
  4. BENADRYL                           /00000402/ [Concomitant]
     Dosage: 25 mg, qd
  5. SUBOXONE [Concomitant]
     Dosage: 8 mg, UNK

REACTIONS (1)
  - Neutropenia [Unknown]
